FAERS Safety Report 22200210 (Version 1)
Quarter: 2023Q2

REPORT INFORMATION
  Report Type: Spontaneous
  Country: IT (occurrence: IT)
  Receive Date: 20230412
  Receipt Date: 20230412
  Transmission Date: 20230722
  Serious: Yes (Hospitalization, Other)
  Sender: FDA-Public Use
  Company Number: IT-BoehringerIngelheim-2023-BI-230819

PATIENT
  Age: 73 Year
  Sex: Female

DRUGS (1)
  1. HYDROCHLOROTHIAZIDE\TELMISARTAN [Suspect]
     Active Substance: HYDROCHLOROTHIAZIDE\TELMISARTAN
     Indication: Hypertension
     Dates: start: 2015

REACTIONS (5)
  - Jaw fracture [Unknown]
  - Depressed mood [Unknown]
  - Dizziness [Unknown]
  - Muscle spasms [Unknown]
  - Hyperhidrosis [Unknown]
